FAERS Safety Report 8283197-5 (Version None)
Quarter: 2012Q2

REPORT INFORMATION
  Report Type: 
  Country: None (occurrence: None)
  Receive Date: 20120413
  Receipt Date: 20120410
  Transmission Date: 20120825
  Serious: Yes (Other)
  Sender: FDA-Public Use
  Company Number: ES-MERCK-1204ESP00015

PATIENT
  Age: 22 Year
  Sex: Female

DRUGS (1)
  1. SINGULAIR [Suspect]
     Indication: ASTHMA
     Route: 001
     Dates: start: 20110501, end: 20111101

REACTIONS (5)
  - DECREASED APPETITE [None]
  - HEADACHE [None]
  - DIZZINESS [None]
  - ABDOMINAL PAIN UPPER [None]
  - SLEEP DISORDER [None]
